FAERS Safety Report 5346646-8 (Version None)
Quarter: 2007Q2

REPORT INFORMATION
  Report Type: 
  Country: None (occurrence: None)
  Receive Date: 20070605
  Receipt Date: 20070524
  Transmission Date: 20071010
  Serious: Yes (Other)
  Sender: FDA-Public Use
  Company Number: GB-PFIZER INC-2007036602

PATIENT
  Age: 32 Year
  Sex: Female

DRUGS (4)
  1. PREGABALIN [Suspect]
     Indication: PARTIAL SEIZURES
     Route: 048
     Dates: start: 20050101, end: 20060201
  2. TEGRETOL [Suspect]
     Indication: EPILEPSY
  3. KEPPRA [Suspect]
     Indication: EPILEPSY
     Route: 048
  4. PHENYTOIN [Suspect]
     Indication: EPILEPSY
     Route: 048

REACTIONS (4)
  - BALANCE DISORDER [None]
  - DIPLOPIA [None]
  - DIZZINESS [None]
  - DYSARTHRIA [None]
